FAERS Safety Report 5158845-9 (Version None)
Quarter: 2006Q4

REPORT INFORMATION
  Report Type: 
  Country: None (occurrence: None)
  Receive Date: 20061117
  Receipt Date: 20061108
  Transmission Date: 20070319
  Serious: Yes (Disabling, Other)
  Sender: FDA-Public Use
  Company Number: 163-21880-06110503

PATIENT
  Age: 47 Year
  Sex: Female

DRUGS (1)
  1. REVLIMID [Suspect]
     Indication: MYELODYSPLASTIC SYNDROME
     Dosage: 10 MG, DAILY, ORAL
     Route: 048
     Dates: start: 20050101

REACTIONS (2)
  - CHRONIC INFLAMMATORY DEMYELINATING POLYRADICULONEUROPATHY [None]
  - QUADRIPLEGIA [None]
